FAERS Safety Report 22647030 (Version 1)
Quarter: 2023Q2

REPORT INFORMATION
  Report Type: Spontaneous
  Country: US (occurrence: US)
  Receive Date: 20230627
  Receipt Date: 20230627
  Transmission Date: 20230721
  Serious: No
  Sender: FDA-Public Use
  Company Number: US-PERRIGO-23US006650

PATIENT

DRUGS (1)
  1. NASONEX [Suspect]
     Active Substance: MOMETASONE FUROATE
     Indication: Product used for unknown indication
     Dosage: UNKNOWN, UNKNOWN
     Route: 045
     Dates: start: 202305

REACTIONS (5)
  - Muscle spasms [Unknown]
  - Abdominal discomfort [Unknown]
  - Chest discomfort [Unknown]
  - Musculoskeletal chest pain [Unknown]
  - Anxiety [Unknown]

NARRATIVE: CASE EVENT DATE: 20230101
